FAERS Safety Report 14005117 (Version 2)
Quarter: 2017Q4

REPORT INFORMATION
  Report Type: Spontaneous
  Country: ES (occurrence: ES)
  Receive Date: 20170922
  Receipt Date: 20171005
  Transmission Date: 20180321
  Serious: Yes (Hospitalization, Disabling)
  Sender: FDA-Public Use
  Company Number: ES-JNJFOC-20170914159

PATIENT
  Age: 76 Year
  Sex: Female

DRUGS (2)
  1. ADIRO [Concomitant]
     Active Substance: ASPIRIN
     Route: 065
  2. RISPERDAL [Suspect]
     Active Substance: RISPERIDONE
     Indication: DELIRIUM
     Route: 065
     Dates: start: 20170706

REACTIONS (7)
  - Social avoidant behaviour [Recovering/Resolving]
  - Inappropriate schedule of drug administration [Unknown]
  - Gait inability [Not Recovered/Not Resolved]
  - Off label use [Unknown]
  - Chest pain [Recovering/Resolving]
  - Extrapyramidal disorder [Recovering/Resolving]
  - Product use in unapproved indication [Unknown]

NARRATIVE: CASE EVENT DATE: 2017
